FAERS Safety Report 7550434-1 (Version None)
Quarter: 2011Q2

REPORT INFORMATION
  Report Type: 
  Country: None (occurrence: None)
  Receive Date: 20110615
  Receipt Date: 20101110
  Transmission Date: 20111010
  Serious: No
  Sender: FDA-Public Use
  Company Number: US-BAUSCH-2010BL006406

PATIENT
  Age: 51 Year
  Sex: Female

DRUGS (3)
  1. GENTAMICIN SULFATE [Suspect]
     Indication: CONJUNCTIVITIS INFECTIVE
     Route: 047
     Dates: start: 20101109
  2. SINGULAIR [Concomitant]
  3. FLONASE [Concomitant]

REACTIONS (4)
  - PHOTOSENSITIVITY REACTION [None]
  - LACRIMATION INCREASED [None]
  - OCULAR HYPERAEMIA [None]
  - DRUG HYPERSENSITIVITY [None]
